FAERS Safety Report 6492340-X (Version None)
Quarter: 2009Q4

REPORT INFORMATION
  Report Type: 
  Country: None (occurrence: None)
  Receive Date: 20091208
  Receipt Date: 20091127
  Transmission Date: 20100525
  Serious: Yes (Other)
  Sender: FDA-Public Use
  Company Number: 2009SP025527

PATIENT
  Age: 88 Year
  Sex: Male
  Weight: 40 kg

DRUGS (17)
  1. REMERON [Suspect]
     Indication: DEPRESSION
     Dosage: 15 MG;QD;PO; 7.5 MG;QD;PO; 22.5 MG;QD;PO
     Route: 048
     Dates: start: 20090911, end: 20090913
  2. REMERON [Suspect]
     Indication: DEPRESSION
     Dosage: 15 MG;QD;PO; 7.5 MG;QD;PO; 22.5 MG;QD;PO
     Route: 048
     Dates: start: 20090914, end: 20090916
  3. REMERON [Suspect]
     Indication: DEPRESSION
     Dosage: 15 MG;QD;PO; 7.5 MG;QD;PO; 22.5 MG;QD;PO
     Route: 048
     Dates: start: 20090917, end: 20091014
  4. REMERON [Suspect]
     Indication: DEPRESSION
     Dosage: 15 MG;QD;PO; 7.5 MG;QD;PO; 22.5 MG;QD;PO
     Route: 048
     Dates: start: 20091015
  5. ZOLOFT [Suspect]
     Indication: DEPRESSION
     Dosage: 25 MG; PO; 50 MG; PO; 75 MG; PO; 100 MG; PO
     Route: 048
     Dates: start: 20090529, end: 20090604
  6. ZOLOFT [Suspect]
     Indication: DEPRESSION
     Dosage: 25 MG; PO; 50 MG; PO; 75 MG; PO; 100 MG; PO
     Route: 048
     Dates: start: 20090605, end: 20090716
  7. ZOLOFT [Suspect]
     Indication: DEPRESSION
     Dosage: 25 MG; PO; 50 MG; PO; 75 MG; PO; 100 MG; PO
     Route: 048
     Dates: start: 20090717, end: 20090730
  8. ZOLOFT [Suspect]
     Indication: DEPRESSION
     Dosage: 25 MG; PO; 50 MG; PO; 75 MG; PO; 100 MG; PO
     Route: 048
     Dates: start: 20090731, end: 20090827
  9. ZOLOFT [Suspect]
     Indication: DEPRESSION
     Dosage: 25 MG; PO; 50 MG; PO; 75 MG; PO; 100 MG; PO
     Route: 048
     Dates: start: 20090828, end: 20090903
  10. ZOLOFT [Suspect]
     Indication: DEPRESSION
     Dosage: 25 MG; PO; 50 MG; PO; 75 MG; PO; 100 MG; PO
     Route: 048
     Dates: start: 20090904, end: 20090910
  11. ZOLOFT [Suspect]
     Indication: DEPRESSION
     Dosage: 25 MG; PO; 50 MG; PO; 75 MG; PO; 100 MG; PO
     Route: 048
     Dates: start: 20090911, end: 20090917
  12. ETICALM [Concomitant]
  13. ASPIRIN [Concomitant]
  14. NORVASC [Concomitant]
  15. SULPIRIDE [Concomitant]
  16. MUCOSTA [Concomitant]
  17. NAUZELIN [Concomitant]

REACTIONS (8)
  - FALL [None]
  - HEAD INJURY [None]
  - HEPATIC FUNCTION ABNORMAL [None]
  - INCREASED APPETITE [None]
  - MALAISE [None]
  - NIGHTMARE [None]
  - SKIN LACERATION [None]
  - SOMNOLENCE [None]
